FAERS Safety Report 8053388 (Version 3)
Quarter: 2012Q4

REPORT INFORMATION
  Report Type: 
  Country: US (occurrence: US)
  Receive Date: 20110725
  Receipt Date: 20121221
  Transmission Date: 20130627
  Serious: Yes (Other)
  Sender: FDA-Public Use
  Company Number: US-ASTRAZENECA-2010SE11727

PATIENT
  Age: 48 Year
  Sex: Female

DRUGS (1)
  1. NEXIUM [Suspect]
     Route: 048

REACTIONS (17)
  - Hepatitis C [Unknown]
  - Hepatomegaly [Unknown]
  - Ovarian cancer [Unknown]
  - Neoplasm malignant [Unknown]
  - Transient ischaemic attack [Unknown]
  - Hot flush [Unknown]
  - Dysphagia [Unknown]
  - Dyspepsia [Unknown]
  - Oropharyngeal pain [Unknown]
  - Road traffic accident [Unknown]
  - Hepatic cirrhosis [Unknown]
  - Neck injury [Unknown]
  - Joint injury [Unknown]
  - Joint injury [Unknown]
  - Labyrinthitis [Unknown]
  - Intentional drug misuse [Unknown]
  - Drug dose omission [Unknown]
